FAERS Safety Report 5407335-4 (Version None)
Quarter: 2007Q3

REPORT INFORMATION
  Report Type: 
  Country: None (occurrence: None)
  Receive Date: 20070802
  Receipt Date: 20070717
  Transmission Date: 20080115
  Serious: Yes (Hospitalization, Other)
  Sender: FDA-Public Use
  Company Number: 2007BI015950

PATIENT
  Age: 31 Year
  Sex: Female
  Weight: 60 kg

DRUGS (4)
  1. AVONEX [Suspect]
     Indication: MULTIPLE SCLEROSIS
     Dosage: 1 UNK; QW; IM
     Route: 030
     Dates: start: 20040301, end: 20050201
  2. AVONEX [Suspect]
     Indication: MULTIPLE SCLEROSIS
     Dosage: 1 UNK; QW; IM
     Route: 030
     Dates: start: 20050901, end: 20070401
  3. TRINEURIN [Concomitant]
  4. CONTRACEPTIVS NOS [Concomitant]

REACTIONS (7)
  - CAESAREAN SECTION [None]
  - DRUG EXPOSURE DURING PREGNANCY [None]
  - FATIGUE [None]
  - MULTIPLE SCLEROSIS RELAPSE [None]
  - PREGNANCY [None]
  - SUPPRESSED LACTATION [None]
  - UMBILICAL CORD ABNORMALITY [None]
